FAERS Safety Report 20965084 (Version 1)
Quarter: 2022Q2

REPORT INFORMATION
  Report Type: Spontaneous
  Country: IT (occurrence: IT)
  Receive Date: 20220616
  Receipt Date: 20220616
  Transmission Date: 20220721
  Serious: Yes (Other)
  Sender: FDA-Public Use
  Company Number: IT-SUN PHARMACEUTICAL INDUSTRIES LTD-2022R1-340688

PATIENT
  Age: 52 Year
  Sex: Female

DRUGS (1)
  1. AMPHOTERICIN B [Suspect]
     Active Substance: AMPHOTERICIN B
     Indication: Antiviral treatment
     Route: 065

REACTIONS (5)
  - Weight decreased [Unknown]
  - Pancytopenia [Unknown]
  - Anaemia [Unknown]
  - Hypergammaglobulinaemia [Unknown]
  - Splenomegaly [Unknown]
